FAERS Safety Report 5728363-5 (Version None)
Quarter: 2008Q2

REPORT INFORMATION
  Report Type: 
  Country: None (occurrence: None)
  Receive Date: 20080430
  Receipt Date: 20080221
  Transmission Date: 20081010
  Serious: Yes (Hospitalization)
  Sender: FDA-Public Use
  Company Number: 865#9#2008-00004

PATIENT
  Age: 59 Year
  Sex: Female

DRUGS (17)
  1. ROTIGOTINE(DOSE UNKNOWN), PATCH (SILICONE) (ROTIGOTINE) [Suspect]
     Indication: PARKINSON'S DISEASE
     Dosage: SEE IMAGE
     Route: 062
     Dates: start: 20070319, end: 20070325
  2. ROTIGOTINE(DOSE UNKNOWN), PATCH (SILICONE) (ROTIGOTINE) [Suspect]
     Indication: PARKINSON'S DISEASE
     Dosage: SEE IMAGE
     Route: 062
     Dates: start: 20070326, end: 20070401
  3. ROTIGOTINE(DOSE UNKNOWN), PATCH (SILICONE) (ROTIGOTINE) [Suspect]
     Indication: PARKINSON'S DISEASE
     Dosage: SEE IMAGE
     Route: 062
     Dates: start: 20070402, end: 20070408
  4. ROTIGOTINE(DOSE UNKNOWN), PATCH (SILICONE) (ROTIGOTINE) [Suspect]
     Indication: PARKINSON'S DISEASE
     Dosage: SEE IMAGE
     Route: 062
     Dates: start: 20070409, end: 20070415
  5. ROTIGOTINE(DOSE UNKNOWN), PATCH (SILICONE) (ROTIGOTINE) [Suspect]
     Indication: PARKINSON'S DISEASE
     Dosage: SEE IMAGE
     Route: 062
     Dates: start: 20070416, end: 20070422
  6. ROTIGOTINE(DOSE UNKNOWN), PATCH (SILICONE) (ROTIGOTINE) [Suspect]
     Indication: PARKINSON'S DISEASE
     Dosage: SEE IMAGE
     Route: 062
     Dates: start: 20070423, end: 20070930
  7. ROTIGOTINE(DOSE UNKNOWN), PATCH (SILICONE) (ROTIGOTINE) [Suspect]
     Indication: PARKINSON'S DISEASE
     Dosage: SEE IMAGE
     Route: 062
     Dates: start: 20071001, end: 20080120
  8. ROTIGOTINE(DOSE UNKNOWN), PATCH (SILICONE) (ROTIGOTINE) [Suspect]
     Indication: PARKINSON'S DISEASE
     Dosage: SEE IMAGE
     Route: 062
     Dates: start: 20080121, end: 20080203
  9. ROTIGOTINE(DOSE UNKNOWN), PATCH (SILICONE) (ROTIGOTINE) [Suspect]
     Indication: PARKINSON'S DISEASE
     Dosage: SEE IMAGE
     Route: 062
     Dates: start: 20080128, end: 20080203
  10. ROTIGOTINE(DOSE UNKNOWN), PATCH (SILICONE) (ROTIGOTINE) [Suspect]
     Indication: PARKINSON'S DISEASE
     Dosage: SEE IMAGE
     Route: 062
     Dates: start: 20080204, end: 20080217
  11. LEVODOPA, CARBIDOPA (CARBIDOPA, LEVODOPA) [Suspect]
     Indication: PARKINSON'S DISEASE
     Dosage: 300 MG, ORAL
     Route: 048
     Dates: start: 20061023
  12. REBAMIPIDE (REBAMIPIDE) [Concomitant]
  13. ATORVASTATIN CALCIUM HYDRATE (ATORVASTATIN CALCIUM ) [Concomitant]
  14. HERBAL EXTRACT NOS  (HERBAL EXTRACT NOS ) [Concomitant]
  15. QUETIAPINE FUMARTE (QUETIAPINE FUMARTE) [Concomitant]
  16. ARIPIPRAZOLE [Concomitant]
  17. AMLODIPINE BESYLATE [Concomitant]

REACTIONS (2)
  - DELUSION [None]
  - HALLUCINATION [None]
